FAERS Safety Report 8435871-5 (Version None)
Quarter: 2012Q2

REPORT INFORMATION
  Report Type: 
  Country: None (occurrence: None)
  Receive Date: 20120614
  Receipt Date: 20120612
  Transmission Date: 20120825
  Serious: Yes (Death)
  Sender: FDA-Public Use
  Company Number: US-ROCHE-1055864

PATIENT
  Sex: Male

DRUGS (6)
  1. OXALIPLATIN [Suspect]
     Indication: RECTAL CANCER
  2. AVASTIN [Suspect]
     Indication: COLON CANCER
  3. AVASTIN [Suspect]
     Indication: RECTAL CANCER
  4. OXALIPLATIN [Suspect]
     Indication: COLON CANCER
  5. XELODA [Suspect]
     Indication: RECTAL CANCER
  6. XELODA [Suspect]
     Indication: COLON CANCER

REACTIONS (1)
  - DISEASE PROGRESSION [None]
